FAERS Safety Report 10402894 (Version 2)
Quarter: 2014Q4

REPORT INFORMATION
  Report Type: Report from Study
  Country: DE (occurrence: DE)
  Receive Date: 20140822
  Receipt Date: 20141017
  Transmission Date: 20150528
  Serious: Yes (Hospitalization)
  Sender: FDA-Public Use
  Company Number: PHHY2014DE103437

PATIENT
  Sex: Female

DRUGS (8)
  1. AMN107 [Suspect]
     Active Substance: NILOTINIB
     Dosage: 800 MG, PER DAY
     Route: 065
  2. LORZAAR [Concomitant]
     Active Substance: LOSARTAN
     Indication: PRODUCT USED FOR UNKNOWN INDICATION
     Route: 065
  3. CIPROBAY [Concomitant]
     Active Substance: CIPROFLOXACIN
     Indication: PRODUCT USED FOR UNKNOWN INDICATION
     Dosage: 250 MG
     Route: 065
     Dates: start: 201111, end: 201112
  4. AMN107 [Suspect]
     Active Substance: NILOTINIB
     Dosage: 600 MG, DAILY
     Route: 065
     Dates: end: 20130111
  5. AMN107 [Suspect]
     Active Substance: NILOTINIB
     Dosage: 300 MG, DAILY
     Dates: start: 20120208, end: 20120412
  6. AMN107 [Suspect]
     Active Substance: NILOTINIB
     Indication: CHRONIC MYELOID LEUKAEMIA
     Dosage: 600 MG, PER DAY
     Route: 065
     Dates: start: 20110825
  7. AMN107 [Suspect]
     Active Substance: NILOTINIB
     Dosage: 450 MG, DAILY
     Route: 065
     Dates: start: 20120911
  8. AMN107 [Suspect]
     Active Substance: NILOTINIB
     Dosage: 600 MG, DAILY
     Route: 065
     Dates: start: 20120413, end: 20120910

REACTIONS (2)
  - Vomiting [Recovered/Resolved]
  - Dizziness [Recovered/Resolved]

NARRATIVE: CASE EVENT DATE: 20120903
